FAERS Safety Report 6541555-0 (Version None)
Quarter: 2010Q1

REPORT INFORMATION
  Report Type: 
  Country: None (occurrence: None)
  Receive Date: 20100119
  Receipt Date: 20100105
  Transmission Date: 20100710
  Serious: Yes (Death, Hospitalization)
  Sender: FDA-Public Use
  Company Number: JP-ROCHE-663804

PATIENT
  Age: 5 Year
  Sex: Male

DRUGS (1)
  1. TAMIFLU [Suspect]
     Indication: H1N1 INFLUENZA
     Dosage: REPORTED INDICATION: INFLUENZA A VIRUS INFECTION/INFLUENZA.
     Route: 048
     Dates: start: 20091013, end: 20091001

REACTIONS (4)
  - MYOCARDITIS [None]
  - PNEUMONIA [None]
  - RESPIRATORY DEPRESSION [None]
  - SUDDEN DEATH [None]
